FAERS Safety Report 8806670 (Version 2)
Quarter: 2013Q2

REPORT INFORMATION
  Report Type: Spontaneous
  Country: JP (occurrence: None)
  Receive Date: 20120919
  Receipt Date: 20130429
  Transmission Date: 20140414
  Serious: Yes (Hospitalization)
  Sender: FDA-Public Use
  Company Number: ABR_00628_2012

PATIENT
  Age: 58 Year
  Sex: Female

DRUGS (1)
  1. ERYTHROMYCIN STEARATE [Suspect]
     Indication: PRODUCT USED FOR UNKNOWN INDICATION
     Route: 048
     Dates: start: 201008, end: 201010

REACTIONS (1)
  - Drug-induced liver injury [None]
